FAERS Safety Report 17543868 (Version 2)
Quarter: 2024Q1

REPORT INFORMATION
  Report Type: Other
  Country: US (occurrence: None)
  Receive Date: 20200316
  Receipt Date: 20240209
  Transmission Date: 20240409
  Serious: Yes (Hospitalization, Other)
  Sender: FDA-Public Use
  Company Number: US-ROCHE-2549275

PATIENT
  Age: 69 Year
  Sex: Male
  Weight: 93.524 kg

DRUGS (3)
  1. OCREVUS [Suspect]
     Active Substance: OCRELIZUMAB
     Indication: Relapsing-remitting multiple sclerosis
     Dosage: DATE OF TREATMENT: 2023-08-02, 2023-02-01, 2022-08-01, 2022-02-01, 2021-08-02,?2021-02-02, 2020-08-0
     Route: 042
     Dates: start: 20180803
  2. KEPPRA [Concomitant]
     Active Substance: LEVETIRACETAM
     Indication: Seizure
     Dosage: STARTED AFTER OCREVUS ;ONGOING: YES
     Route: 065
  3. NITROGLYCERIN [Concomitant]
     Active Substance: NITROGLYCERIN
     Dosage: PRESCRIBED AFTER OCREVUS ;ONGOING: YES

REACTIONS (15)
  - Hypotension [Recovered/Resolved]
  - Diarrhoea [Recovered/Resolved]
  - Testis cancer [Recovered/Resolved]
  - Magnetic resonance imaging head abnormal [Not Recovered/Not Resolved]
  - Fall [Unknown]
  - Venous occlusion [Recovered/Resolved]
  - Head injury [Unknown]
  - Thinking abnormal [Not Recovered/Not Resolved]
  - Dizziness [Recovered/Resolved]
  - Walking aid user [Not Recovered/Not Resolved]
  - Memory impairment [Not Recovered/Not Resolved]
  - Gait disturbance [Recovered/Resolved]
  - Hypersomnia [Not Recovered/Not Resolved]
  - Asthenia [Not Recovered/Not Resolved]
  - Muscular weakness [Unknown]

NARRATIVE: CASE EVENT DATE: 20190101
